FAERS Safety Report 4389073-2 (Version None)
Quarter: 2004Q3

REPORT INFORMATION
  Report Type: 
  Country: None (occurrence: None)
  Receive Date: 20040702
  Receipt Date: 20040618
  Transmission Date: 20050211
  Serious: Yes (Hospitalization)
  Sender: FDA-Public Use
  Company Number: 200412395FR

PATIENT
  Age: 71 Year
  Sex: Female

DRUGS (3)
  1. TRAMADOL HCL [Suspect]
     Indication: NECK PAIN
     Dosage: DOSE UNIT: UNITS
     Route: 048
     Dates: start: 20040322, end: 20040325
  2. HEMI-DAONIL [Suspect]
     Indication: DIABETES MELLITUS
     Route: 048
  3. FENOFIBRATE [Suspect]
     Indication: HYPERCHOLESTEROLAEMIA
     Dosage: DOSE UNIT: UNITS
     Route: 048
     Dates: end: 20040423

REACTIONS (10)
  - ALANINE AMINOTRANSFERASE INCREASED [None]
  - ASPARTATE AMINOTRANSFERASE INCREASED [None]
  - CHOLESTASIS [None]
  - DYSSTASIA [None]
  - FALL [None]
  - HEPATOCELLULAR DAMAGE [None]
  - HYPOTONIA [None]
  - LOSS OF CONSCIOUSNESS [None]
  - MALAISE [None]
  - VERTIGO [None]
